FAERS Safety Report 18232966 (Version 1)
Quarter: 2020Q3

REPORT INFORMATION
  Report Type: Spontaneous
  Country: US (occurrence: US)
  Receive Date: 20200904
  Receipt Date: 20200904
  Transmission Date: 20201103
  Serious: No
  Sender: FDA-Public Use
  Company Number: None

PATIENT
  Age: 54 Year
  Sex: Male

DRUGS (1)
  1. HUMIRA [Suspect]
     Active Substance: ADALIMUMAB
     Indication: PSORIASIS
     Dosage: ?          OTHER FREQUENCY:EVERY OTHER WEEK;?
     Route: 058
     Dates: start: 20200625

REACTIONS (5)
  - Therapeutic product effect incomplete [None]
  - Diarrhoea [None]
  - Anal incontinence [None]
  - Drug intolerance [None]
  - Quality of life decreased [None]

NARRATIVE: CASE EVENT DATE: 20200904
